FAERS Safety Report 17492882 (Version 1)
Quarter: 2020Q1

REPORT INFORMATION
  Report Type: Spontaneous
  Country: US (occurrence: US)
  Receive Date: 20200304
  Receipt Date: 20200304
  Transmission Date: 20200409
  Serious: No
  Sender: FDA-Public Use
  Company Number: US-DRREDDYS-USA/USA/20/0120027

PATIENT
  Sex: Female
  Weight: 96.16 kg

DRUGS (1)
  1. PREGABALIN. [Suspect]
     Active Substance: PREGABALIN
     Indication: NEUROPATHY PERIPHERAL
     Dosage: 6 OR 8 MONTH AGO
     Route: 048

REACTIONS (1)
  - Sleep disorder [Not Recovered/Not Resolved]
